FAERS Safety Report 5171706-4 (Version None)
Quarter: 2006Q4

REPORT INFORMATION
  Report Type: 
  Country: None (occurrence: None)
  Receive Date: 20061213
  Receipt Date: 20061207
  Transmission Date: 20070319
  Serious: Yes (Other)
  Sender: FDA-Public Use
  Company Number: US-BRISTOL-MYERS SQUIBB COMPANY-13605167

PATIENT
  Age: 90 Year
  Sex: Female
  Weight: 64 kg

DRUGS (3)
  1. COUMADIN [Suspect]
  2. BENEFIBER [Suspect]
     Indication: NUTRITIONAL SUPPORT
     Dosage: BENEFIBER DOSAGE 1 TSP PO TID.
     Route: 048
  3. PROTONIX [Concomitant]

REACTIONS (2)
  - ANAL DISCOMFORT [None]
  - RECTAL HAEMORRHAGE [None]
